FAERS Safety Report 10739700 (Version 1)
Quarter: 2015Q1

REPORT INFORMATION
  Report Type: Spontaneous
  Country: US (occurrence: US)
  Receive Date: 20150127
  Receipt Date: 20150127
  Transmission Date: 20150721
  Serious: Yes (Hospitalization)
  Sender: FDA-Public Use
  Company Number: US-JNJFOC-20150111623

PATIENT
  Age: 38 Year
  Sex: Male
  Weight: 143.34 kg

DRUGS (1)
  1. EXTRA STRENGTH TYLENOL PM [Suspect]
     Active Substance: ACETAMINOPHEN\DIPHENHYDRAMINE HYDROCHLORIDE
     Indication: PRODUCT USED FOR UNKNOWN INDICATION
     Dosage: 15-20, X 1.5 WEEKS, GREATER THAN A WEEK BUT LESS THAN A MONTH
     Route: 048

REACTIONS (1)
  - Accidental overdose [Unknown]
